FAERS Safety Report 7193167-6 (Version None)
Quarter: 2010Q4

REPORT INFORMATION
  Report Type: 
  Country: None (occurrence: None)
  Receive Date: 20101223
  Receipt Date: 20100831
  Transmission Date: 20110411
  Serious: No
  Sender: FDA-Public Use
  Company Number: US-AMGEN-KDL435423

PATIENT

DRUGS (1)
  1. ENBREL [Suspect]
     Indication: RHEUMATOID ARTHRITIS
     Dosage: 12.5 MG, 2 TIMES/WK
     Route: 058
     Dates: end: 20100824

REACTIONS (2)
  - BLOOD URINE PRESENT [None]
  - HYPERSENSITIVITY [None]
